FAERS Safety Report 21633046 (Version 1)
Quarter: 2022Q4

REPORT INFORMATION
  Report Type: Spontaneous
  Country: IN (occurrence: IN)
  Receive Date: 20221123
  Receipt Date: 20221123
  Transmission Date: 20230112
  Serious: Yes (Hospitalization)
  Sender: FDA-Public Use
  Company Number: IN-MYLANLABS-2022M1131149

PATIENT
  Age: 24 Year
  Sex: Female

DRUGS (2)
  1. METHOTREXATE [Suspect]
     Active Substance: METHOTREXATE
     Indication: Philadelphia positive acute lymphocytic leukaemia
     Dosage: 5 GRAM PER SQUARE METRE, QD (5G/M2 AS A 24 HOUR INFUSION)
     Route: 042
  2. METHOTREXATE [Suspect]
     Active Substance: METHOTREXATE
     Indication: B-cell type acute leukaemia

REACTIONS (6)
  - Acute kidney injury [Recovering/Resolving]
  - Hypertransaminasaemia [Recovering/Resolving]
  - Rash [Recovered/Resolved]
  - Haematochezia [Recovering/Resolving]
  - Myelosuppression [Recovering/Resolving]
  - Stomatitis [Recovering/Resolving]
